FAERS Safety Report 13448403 (Version 2)
Quarter: 2017Q2

REPORT INFORMATION
  Report Type: Report from Study
  Country: US (occurrence: US)
  Receive Date: 20170417
  Receipt Date: 20170502
  Transmission Date: 20170830
  Serious: Yes (Death, Hospitalization)
  Sender: FDA-Public Use
  Company Number: US-ACTELION-A-US2016-130581

PATIENT
  Age: 72 Year
  Sex: Female

DRUGS (7)
  1. TRACLEER [Suspect]
     Active Substance: BOSENTAN
     Dosage: 125 MG, BID
     Route: 048
     Dates: start: 20100423
  2. NEXIUM [Concomitant]
     Active Substance: ESOMEPRAZOLE MAGNESIUM
     Dosage: 10 MG, QD
     Dates: start: 20121114
  3. LUMIGAN [Concomitant]
     Active Substance: BIMATOPROST
     Dosage: 0.01 %, UNK
     Route: 047
     Dates: start: 20121114
  4. LEVOTHYROXINE. [Concomitant]
     Active Substance: LEVOTHYROXINE
     Dosage: 100 MG, QD
     Dates: start: 20121114
  5. ALBUTEROL SULFATE. [Concomitant]
     Active Substance: ALBUTEROL SULFATE
     Dosage: 108 MCG, 1-2 PUFFS Q 4-6 HR
     Route: 055
     Dates: start: 20121114
  6. ASA [Concomitant]
     Active Substance: ASPIRIN
     Dosage: 27-500-100 MG QD
     Dates: start: 20121114
  7. TRACLEER [Suspect]
     Active Substance: BOSENTAN
     Indication: INTERSTITIAL LUNG DISEASE
     Dosage: 125 MG, BID
     Route: 048
     Dates: start: 20121114, end: 20170407

REACTIONS (7)
  - Upper respiratory tract infection [Unknown]
  - Death [Fatal]
  - Pulmonary oedema [Unknown]
  - Peripheral swelling [Unknown]
  - Viral upper respiratory tract infection [Unknown]
  - Dyspnoea [Unknown]
  - Sinusitis [Unknown]

NARRATIVE: CASE EVENT DATE: 20170407
